FAERS Safety Report 18768424 (Version 1)
Quarter: 2021Q1

REPORT INFORMATION
  Report Type: Spontaneous
  Country: US (occurrence: US)
  Receive Date: 20210121
  Receipt Date: 20210121
  Transmission Date: 20210419
  Serious: Yes (Other)
  Sender: FDA-Public Use
  Company Number: US-SUN PHARMACEUTICAL INDUSTRIES LTD-2021R1-276289

PATIENT
  Age: 75 Year
  Sex: Male

DRUGS (1)
  1. GABAPENTIN. [Suspect]
     Active Substance: GABAPENTIN
     Indication: HAEMARTHROSIS
     Dosage: 1200 MILLIGRAM, DAILY
     Route: 065

REACTIONS (7)
  - Lethargy [Unknown]
  - Drug interaction [Unknown]
  - Hypotension [Unknown]
  - Toxicity to various agents [Unknown]
  - Blood creatinine increased [Recovering/Resolving]
  - Medication error [Unknown]
  - Withdrawal syndrome [Unknown]
